FAERS Safety Report 24269241 (Version 5)
Quarter: 2025Q3

REPORT INFORMATION
  Report Type: Spontaneous
  Country: US (occurrence: US)
  Receive Date: 20240830
  Receipt Date: 20250802
  Transmission Date: 20251021
  Serious: Yes (Other)
  Sender: ALEXION PHARMACEUTICALS
  Company Number: 2024A192215

PATIENT
  Sex: Female

DRUGS (1)
  1. BYDUREON BCISE [Suspect]
     Active Substance: EXENATIDE
     Route: 065

REACTIONS (11)
  - Cataract [Unknown]
  - Eye disorder [Unknown]
  - Pancreatic atrophy [Unknown]
  - Diabetes mellitus [Unknown]
  - Hyperthyroidism [Unknown]
  - Astigmatism [Unknown]
  - Ill-defined disorder [Unknown]
  - Arthropathy [Unknown]
  - Needle issue [Unknown]
  - Incorrect dose administered by device [Unknown]
  - Extra dose administered [Unknown]
